FAERS Safety Report 5315868-4 (Version None)
Quarter: 2007Q1

REPORT INFORMATION
  Report Type: 
  Country: None (occurrence: None)
  Receive Date: 20070130
  Receipt Date: 20061220
  Transmission Date: 20070707
  Serious: No
  Sender: FDA-Public Use
  Company Number: 200620230US

PATIENT
  Age: 48 Year
  Sex: Female

DRUGS (13)
  1. KETEK [Suspect]
     Indication: BRONCHITIS
     Dosage: 800 MG QD
     Dates: start: 20060610, end: 20060101
  2. KETEK [Suspect]
     Indication: SINUSITIS
     Dosage: 800 MG QD
     Dates: start: 20060610, end: 20060101
  3. ERGOCALCIFEROL [Concomitant]
  4. ASCORBIC ACID [Concomitant]
  5. FOLIC ACID [Concomitant]
  6. THIAMINE HCL [Concomitant]
  7. RETINOL [Concomitant]
  8. RIBOFLAVIN [Concomitant]
  9. NICOTINAMIDE [Concomitant]
  10. PANTHENOL (MULTIVITAMINS) [Concomitant]
  11. FOLIC ACID [Concomitant]
  12. ASCORBIC ACID (VITAMIN C) [Concomitant]
  13. CYANOCOBALAMIN (VITAMIN B-12) [Concomitant]

REACTIONS (2)
  - CHROMATURIA [None]
  - OCULAR ICTERUS [None]
